FAERS Safety Report 9196636 (Version 1)
Quarter: 2013Q1

REPORT INFORMATION
  Report Type: Spontaneous
  Country: US (occurrence: US)
  Receive Date: 20130328
  Receipt Date: 20130328
  Transmission Date: 20140127
  Serious: No
  Sender: FDA-Public Use
  Company Number: US-PFIZER INC-2013098422

PATIENT
  Sex: Female

DRUGS (4)
  1. ADVIL [Suspect]
     Indication: MIGRAINE
     Dosage: UNK
  2. ADVIL [Suspect]
     Indication: HEADACHE
  3. TYLENOL [Suspect]
     Indication: MIGRAINE
     Dosage: UNK
  4. TYLENOL [Suspect]
     Indication: HEADACHE

REACTIONS (1)
  - Drug ineffective [Unknown]
